FAERS Safety Report 6193992-4 (Version None)
Quarter: 2009Q2

REPORT INFORMATION
  Report Type: 
  Country: None (occurrence: None)
  Receive Date: 20090518
  Receipt Date: 20090513
  Transmission Date: 20091009
  Serious: Yes (Hospitalization)
  Sender: FDA-Public Use
  Company Number: PHEH2009US04883

PATIENT
  Sex: Female

DRUGS (1)
  1. GLEEVEC [Suspect]
     Indication: CHRONIC MYELOID LEUKAEMIA
     Dosage: 400 MG, QD
     Route: 048
     Dates: start: 20081204

REACTIONS (5)
  - COUGH [None]
  - DIARRHOEA [None]
  - GASTROINTESTINAL TUBE INSERTION [None]
  - NAUSEA [None]
  - VERTIGO [None]
